FAERS Safety Report 18043491 (Version 1)
Quarter: 2020Q3

REPORT INFORMATION
  Report Type: Spontaneous
  Country: US (occurrence: US)
  Receive Date: 20200720
  Receipt Date: 20200720
  Transmission Date: 20201103
  Serious: Yes (Other)
  Sender: FDA-Public Use
  Company Number: US-ROCHE-2641561

PATIENT
  Sex: Female
  Weight: 74.91 kg

DRUGS (13)
  1. RITUXAN [Suspect]
     Active Substance: RITUXIMAB
     Indication: RHEUMATOID ARTHRITIS
     Route: 065
     Dates: start: 20200420
  2. CELLCEPT [Suspect]
     Active Substance: MYCOPHENOLATE MOFETIL\MYCOPHENOLATE MOFETIL HYDROCHLORIDE
     Indication: INTERSTITIAL LUNG DISEASE
     Route: 048
     Dates: start: 2016
  3. PREDNISONE. [Concomitant]
     Active Substance: PREDNISONE
     Indication: ARTHRITIS
     Dosage: START AT 40 MG, TAPER DOWN TO 3MG/DAY MAINTENANCE
     Route: 048
     Dates: start: 20200603
  4. VITAMIN D [ERGOCALCIFEROL] [Concomitant]
     Active Substance: ERGOCALCIFEROL
     Indication: VITAMIN D DECREASED
     Dosage: (VITAMIN D2)
     Route: 048
  5. RITUXAN [Suspect]
     Active Substance: RITUXIMAB
     Route: 065
     Dates: start: 20200504
  6. SERTRALINE [Concomitant]
     Active Substance: SERTRALINE HYDROCHLORIDE
     Indication: STRESS
     Route: 048
     Dates: start: 2018
  7. LOSARTAN. [Concomitant]
     Active Substance: LOSARTAN
     Indication: HYPERTENSION
     Route: 048
     Dates: start: 202006
  8. PREDNISONE. [Concomitant]
     Active Substance: PREDNISONE
     Indication: INTERSTITIAL LUNG DISEASE
     Dosage: HOLD DOSE DURING TAPER, RESUME AFTER TAPER
     Route: 048
  9. HYDROCHLOROTHIAZIDE. [Concomitant]
     Active Substance: HYDROCHLOROTHIAZIDE
     Indication: HYPERTENSION
     Dates: start: 202001
  10. IBUPROFEN. [Concomitant]
     Active Substance: IBUPROFEN
     Indication: PAIN
     Route: 048
  11. OXYGEN. [Concomitant]
     Active Substance: OXYGEN
     Indication: INTERSTITIAL LUNG DISEASE
  12. FAMOTIDINE. [Concomitant]
     Active Substance: FAMOTIDINE
     Indication: DYSPEPSIA
     Route: 048
     Dates: start: 2019
  13. ALENDRONATE [Concomitant]
     Active Substance: ALENDRONATE SODIUM
     Indication: BONE DENSITY DECREASED
     Route: 048
     Dates: start: 2019

REACTIONS (10)
  - Cerebrovascular accident [Recovered/Resolved]
  - Dysphonia [Unknown]
  - Intentional product use issue [Unknown]
  - Bone density abnormal [Unknown]
  - Hypertension [Unknown]
  - Vitamin D decreased [Unknown]
  - Dyspepsia [Recovered/Resolved]
  - Off label use [Unknown]
  - Stomatitis [Not Recovered/Not Resolved]
  - Stress [Unknown]
